FAERS Safety Report 5361051-6 (Version None)
Quarter: 2007Q2

REPORT INFORMATION
  Report Type: 
  Country: None (occurrence: None)
  Receive Date: 20070530
  Receipt Date: 20070326
  Transmission Date: 20071010
  Serious: No
  Sender: FDA-Public Use
  Company Number: 2007PV032364

PATIENT
  Age: 70 Year
  Sex: Male

DRUGS (4)
  1. BYETTA [Suspect]
     Indication: DIABETES MELLITUS NON-INSULIN-DEPENDENT
     Dates: start: 20070201, end: 20070321
  2. BYETTA [Suspect]
     Indication: DIABETES MELLITUS NON-INSULIN-DEPENDENT
     Dates: start: 20070322
  3. GLYBURIDE [Concomitant]
  4. ACTOS [Concomitant]

REACTIONS (7)
  - BLOOD GLUCOSE DECREASED [None]
  - DIZZINESS [None]
  - FEELING DRUNK [None]
  - HEADACHE [None]
  - NAUSEA [None]
  - PALLOR [None]
  - SOMNOLENCE [None]
